FAERS Safety Report 21272510 (Version 4)
Quarter: 2023Q4

REPORT INFORMATION
  Report Type: Spontaneous
  Country: US (occurrence: US)
  Receive Date: 20220830
  Receipt Date: 20231117
  Transmission Date: 20240109
  Serious: No
  Sender: FDA-Public Use
  Company Number: US-Blueprint Medicines Corporation-SP-US-2022-002659

PATIENT
  Age: 80 Year
  Sex: Female

DRUGS (7)
  1. AYVAKIT [Suspect]
     Active Substance: AVAPRITINIB
     Indication: Advanced systemic mastocytosis
     Route: 048
     Dates: start: 20210817
  2. AYVAKIT [Suspect]
     Active Substance: AVAPRITINIB
     Route: 048
     Dates: start: 20210817
  3. AYVAKIT [Suspect]
     Active Substance: AVAPRITINIB
     Route: 065
  4. AYVAKIT [Suspect]
     Active Substance: AVAPRITINIB
     Dosage: 100 MG WITH ONE 50 MG TABLET
     Route: 048
     Dates: start: 20210817
  5. AYVAKIT [Suspect]
     Active Substance: AVAPRITINIB
     Dosage: 100 MG WITH ONE 50 MG TABLET
     Route: 048
     Dates: start: 20210817
  6. AYVAKIT [Suspect]
     Active Substance: AVAPRITINIB
     Dosage: TAKE 1 TABLET ALONG WITH ONE 100MG TABLET BY MOUTY DAILY FOR A TOTAL DAILY DOSE OF 150MG
     Route: 048
     Dates: start: 20210817
  7. AYVAKIT [Suspect]
     Active Substance: AVAPRITINIB
     Dosage: TAKE 1 TABLET ALONG WITH ONE 50MG TABLET BY MOUTY DAILY FOR A TOTAL DAILY DOSE OF 150MG
     Route: 048
     Dates: start: 20210817

REACTIONS (2)
  - Diarrhoea [Unknown]
  - Tryptase increased [Not Recovered/Not Resolved]

NARRATIVE: CASE EVENT DATE: 20220715
